FAERS Safety Report 9131897 (Version 2)
Quarter: 2013Q1

REPORT INFORMATION
  Report Type: Spontaneous
  Country: FR (occurrence: FR)
  Receive Date: 20130301
  Receipt Date: 20130326
  Transmission Date: 20140127
  Serious: Yes (Other)
  Sender: FDA-Public Use
  Company Number: FR-SP-E2013-01474

PATIENT
  Age: 21 Year
  Sex: Male

DRUGS (1)
  1. TUBERTEST [Suspect]
     Indication: TUBERCULIN TEST
     Route: 058
     Dates: start: 20130123, end: 20130123

REACTIONS (7)
  - Inflammation [Unknown]
  - Injection site inflammation [Recovered/Resolved]
  - Instillation site pruritus [Recovered/Resolved]
  - Incorrect route of drug administration [Unknown]
  - Overdose [Unknown]
  - Medication error [Recovered/Resolved]
  - Incorrect dose administered [Recovered/Resolved]
